APPROVED DRUG PRODUCT: PENICILLIN G POTASSIUM
Active Ingredient: PENICILLIN G POTASSIUM
Strength: 1,000,000 UNITS/VIAL
Dosage Form/Route: INJECTABLE;INJECTION
Application: A062991 | Product #001
Applicant: WATSON LABORATORIES INC
Approved: Sep 13, 1988 | RLD: No | RS: No | Type: DISCN